FAERS Safety Report 25299798 (Version 1)
Quarter: 2025Q2

REPORT INFORMATION
  Report Type: Spontaneous
  Country: US (occurrence: US)
  Receive Date: 20250512
  Receipt Date: 20250512
  Transmission Date: 20250717
  Serious: No
  Sender: ELI LILLY AND COMPANY
  Company Number: US-ELI_LILLY_AND_COMPANY-US202505006196

PATIENT
  Age: 36 Year
  Sex: Male

DRUGS (4)
  1. ZEPBOUND [Suspect]
     Active Substance: TIRZEPATIDE
     Indication: Glucose tolerance impaired
     Dosage: 12.5 MG, WEEKLY (1/W)
     Route: 065
     Dates: start: 20250429
  2. ZEPBOUND [Suspect]
     Active Substance: TIRZEPATIDE
     Indication: Glucose tolerance impaired
     Dosage: 12.5 MG, WEEKLY (1/W)
     Route: 065
     Dates: start: 20250429
  3. ZEPBOUND [Suspect]
     Active Substance: TIRZEPATIDE
     Indication: Glucose tolerance impaired
     Dosage: 12.5 MG, WEEKLY (1/W)
     Route: 065
     Dates: start: 20250429
  4. ZEPBOUND [Suspect]
     Active Substance: TIRZEPATIDE
     Indication: Glucose tolerance impaired
     Dosage: 12.5 MG, WEEKLY (1/W)
     Route: 065
     Dates: start: 20250429

REACTIONS (3)
  - Incorrect dose administered [Unknown]
  - Injection site mass [Recovered/Resolved]
  - Off label use [Unknown]

NARRATIVE: CASE EVENT DATE: 20250506
